FAERS Safety Report 15628974 (Version 2)
Quarter: 2018Q4

REPORT INFORMATION
  Report Type: Spontaneous
  Country: FI (occurrence: FI)
  Receive Date: 20181116
  Receipt Date: 20181227
  Transmission Date: 20190205
  Serious: Yes (Other)
  Sender: FDA-Public Use
  Company Number: FI-JNJFOC-20181120750

PATIENT
  Age: 57 Year
  Sex: Female

DRUGS (7)
  1. PREDNISOLONE. [Concomitant]
     Active Substance: PREDNISOLONE
     Route: 065
  2. CALCICHEW D3 FORTE [Concomitant]
     Active Substance: CALCIUM\CHOLECALCIFEROL
     Route: 065
  3. PANADOL [Concomitant]
     Active Substance: ACETAMINOPHEN
     Route: 065
  4. SIMPONI [Suspect]
     Active Substance: GOLIMUMAB
     Indication: COLITIS ULCERATIVE
     Route: 058
     Dates: start: 20150820, end: 20181113
  5. ASACOL [Concomitant]
     Active Substance: MESALAMINE
     Route: 065
  6. ASACOL [Concomitant]
     Active Substance: MESALAMINE
     Route: 065
  7. OPTINATE SEPTIMUM [Concomitant]
     Active Substance: RISEDRONATE SODIUM
     Route: 065

REACTIONS (2)
  - Hyperthyroidism [Recovered/Resolved]
  - Thyroiditis subacute [Recovering/Resolving]
